FAERS Safety Report 9128020 (Version 1)
Quarter: 2013Q1

REPORT INFORMATION
  Report Type: Spontaneous
  Country: FR (occurrence: FR)
  Receive Date: 20130228
  Receipt Date: 20130228
  Transmission Date: 20140127
  Serious: Yes (Other)
  Sender: FDA-Public Use
  Company Number: FR-B.I. PHARMACEUTICALS,INC./RIDGEFIELD-2013-FF-00575FF

PATIENT
  Age: 83 Year
  Sex: Male

DRUGS (5)
  1. PRADAXA [Suspect]
     Indication: EMBOLISM
     Dosage: 220 MG
     Route: 048
     Dates: start: 20120507, end: 20120912
  2. CORDARONE [Suspect]
     Indication: EMBOLISM
     Dosage: 200 MG
     Route: 048
     Dates: start: 20120507
  3. COVERAM [Suspect]
     Indication: HYPERTENSION
     Dosage: 5 MG
     Route: 048
     Dates: start: 20120507, end: 20120706
  4. LASILIX [Suspect]
     Indication: HYPERTENSION
     Dosage: 40 MG
     Route: 048
     Dates: end: 201206
  5. LASILIX [Suspect]
     Dosage: 40 MG
     Route: 048
     Dates: start: 20120724

REACTIONS (1)
  - Renal failure [Recovered/Resolved]
